FAERS Safety Report 4970580-6 (Version None)
Quarter: 2006Q2

REPORT INFORMATION
  Report Type: 
  Country: None (occurrence: None)
  Receive Date: 20060412
  Receipt Date: 20051004
  Transmission Date: 20061013
  Serious: Yes (Hospitalization)
  Sender: FDA-Public Use
  Company Number: US-MERCK-0510USA03508

PATIENT
  Age: 63 Year
  Sex: Male
  Weight: 100 kg

DRUGS (2)
  1. VIOXX [Suspect]
     Indication: ARTHRITIS
     Route: 048
     Dates: start: 19991001, end: 20030201
  2. TYLENOL (CAPLET) [Concomitant]
     Route: 065

REACTIONS (10)
  - ATRIAL FIBRILLATION [None]
  - CORONARY ARTERY THROMBOSIS [None]
  - INTRACARDIAC THROMBUS [None]
  - METABOLIC DISORDER [None]
  - MULTI-ORGAN FAILURE [None]
  - MUSCULOSKELETAL DISORDER [None]
  - NASAL POLYPECTOMY [None]
  - NASAL POLYPS [None]
  - SEPSIS [None]
  - SURGERY [None]
